FAERS Safety Report 8857667 (Version 5)
Quarter: 2013Q2

REPORT INFORMATION
  Report Type: Spontaneous
  Country: US (occurrence: US)
  Receive Date: 20121024
  Receipt Date: 20130514
  Transmission Date: 20140414
  Serious: Yes (Hospitalization)
  Sender: FDA-Public Use
  Company Number: US-ALEXION PHARMACEUTICALS INC.-A201201993

PATIENT
  Sex: Female
  Weight: 84.81 kg

DRUGS (7)
  1. SOLIRIS 300MG [Suspect]
     Indication: PAROXYSMAL NOCTURNAL HAEMOGLOBINURIA
     Dosage: 600 MG, QW +/- 2 DAYS X 4 DOSES
     Route: 042
     Dates: start: 20070522
  2. SOLIRIS 300MG [Suspect]
     Dosage: 900 MG, SINGLE Q7 +/- 2 DAYS LATER
     Route: 042
  3. SOLIRIS 300MG [Suspect]
     Dosage: 900 MG, Q2W +/- 2 DAYS
     Route: 042
  4. SOLIRIS 300MG [Suspect]
     Dosage: 900 MG, EVERY 12 DAYS
     Route: 042
     Dates: start: 20130104
  5. SOLIRIS 300MG [Suspect]
     Dosage: 1200 MG, Q12D
     Route: 042
     Dates: start: 20130305
  6. ZOFRAN [Concomitant]
     Indication: PREGNANCY
  7. ENOXAPARIN [Concomitant]
     Indication: PREGNANCY
     Dosage: 40 MG, QD
     Route: 058

REACTIONS (4)
  - Cytomegalovirus mononucleosis [Recovered/Resolved]
  - Cytomegalovirus viraemia [Recovered/Resolved]
  - Intravascular haemolysis [Recovered/Resolved]
  - Exposure during pregnancy [Recovered/Resolved]
